FAERS Safety Report 10144601 (Version 1)
Quarter: 2014Q2

REPORT INFORMATION
  Report Type: Spontaneous
  Country: US (occurrence: US)
  Receive Date: 20140430
  Receipt Date: 20140430
  Transmission Date: 20141212
  Serious: No
  Sender: FDA-Public Use
  Company Number: US-SANOFI-AVENTIS-2013SA047002

PATIENT
  Age: 61 Year
  Sex: Female

DRUGS (3)
  1. ENOXAPARIN SODIUM - WINTHROP [Suspect]
     Indication: PROPHYLAXIS
     Route: 065
     Dates: start: 20130422, end: 20130429
  2. EFFIENT [Concomitant]
     Dates: start: 201304
  3. COUMADIN [Concomitant]
     Dates: start: 20130426, end: 20130429

REACTIONS (2)
  - Asthenia [Not Recovered/Not Resolved]
  - Injection site bruising [Not Recovered/Not Resolved]
